FAERS Safety Report 5706581-X (Version None)
Quarter: 2008Q2

REPORT INFORMATION
  Report Type: 
  Country: None (occurrence: None)
  Receive Date: 20080414
  Receipt Date: 20080403
  Transmission Date: 20081010
  Serious: Yes (Death, Hospitalization, Other)
  Sender: FDA-Public Use
  Company Number: 093-20785-08040098

PATIENT
  Age: 75 Year
  Sex: Male

DRUGS (1)
  1. THALIDOMIDE [Suspect]
     Indication: MULTIPLE MYELOMA
     Dosage: 100 MG, DAILY, ORAL
     Route: 048
     Dates: start: 20061010, end: 20080214

REACTIONS (5)
  - DISEASE PROGRESSION [None]
  - HYPOTENSION [None]
  - OEDEMA [None]
  - PAIN [None]
  - RESPIRATORY DISTRESS [None]
